FAERS Safety Report 17400686 (Version 1)
Quarter: 2020Q1

REPORT INFORMATION
  Report Type: Report from Study
  Country: IT (occurrence: IT)
  Receive Date: 20200211
  Receipt Date: 20200211
  Transmission Date: 20200409
  Serious: Yes (Other)
  Sender: FDA-Public Use
  Company Number: IT-BRISTOL-MYERS SQUIBB COMPANY-BMS-2020-008344

PATIENT
  Age: 76 Year
  Sex: Male

DRUGS (1)
  1. WARFARIN SODIUM. [Suspect]
     Active Substance: WARFARIN SODIUM
     Indication: THROMBOSIS PROPHYLAXIS
     Dosage: 1 DOSAGE FORM, WHENEVER NECESSARY FORTHROMBOSIS PROPHYLAXIS
     Route: 048
     Dates: start: 20170101

REACTIONS (3)
  - Overdose [Unknown]
  - International normalised ratio increased [Unknown]
  - Hypocoagulable state [Unknown]

NARRATIVE: CASE EVENT DATE: 20191223
